FAERS Safety Report 5677391-7 (Version None)
Quarter: 2008Q1

REPORT INFORMATION
  Report Type: 
  Country: None (occurrence: None)
  Receive Date: 20080324
  Receipt Date: 20080319
  Transmission Date: 20080703
  Serious: Yes (Other)
  Sender: FDA-Public Use
  Company Number: MX-GILEAD-2008-0015794

PATIENT
  Sex: Male

DRUGS (4)
  1. HEPSERA [Suspect]
     Indication: HEPATITIS B
     Route: 048
     Dates: start: 20071012, end: 20080305
  2. ENALAPRIL MALEATE [Concomitant]
     Dates: start: 20071123
  3. OMEPRAZOLE [Concomitant]
     Dates: start: 20080129
  4. COLCHICINE [Concomitant]
     Dates: start: 20080129

REACTIONS (1)
  - HEPATIC CIRRHOSIS [None]
